FAERS Safety Report 10732602 (Version 1)
Quarter: 2015Q1

REPORT INFORMATION
  Report Type: Spontaneous
  Country: DK (occurrence: None)
  Receive Date: 20150120
  Receipt Date: 20150120
  Transmission Date: 20150721
  Serious: Yes (Other)
  Sender: FDA-Public Use
  Company Number: 201501039

PATIENT
  Age: 69 Year
  Sex: Female

DRUGS (1)
  1. XIAPEX (CLOSTRIDIAL COLLAGENASE) [Suspect]
     Active Substance: COLLAGENASE CLOSTRIDIUM HISTOLYTICUM
     Indication: DUPUYTREN^S CONTRACTURE
     Dosage: 0.58 MG, 1 IN 1 D, INTRALESIONAL
     Dates: start: 20111103, end: 20141103

REACTIONS (6)
  - Contusion [None]
  - Pain in extremity [None]
  - Skin mass [None]
  - Vomiting [None]
  - Haemorrhage subcutaneous [None]
  - Lymphadenopathy [None]

NARRATIVE: CASE EVENT DATE: 20141103
